FAERS Safety Report 12558284 (Version 2)
Quarter: 2016Q3

REPORT INFORMATION
  Report Type: Spontaneous
  Country: US (occurrence: US)
  Receive Date: 20160714
  Receipt Date: 20160805
  Transmission Date: 20161109
  Serious: Yes (Other)
  Sender: FDA-Public Use
  Company Number: US-PFIZER INC-2016332375

PATIENT
  Age: 92 Year
  Sex: Female
  Weight: 63.5 kg

DRUGS (3)
  1. LATANOPROST. [Suspect]
     Active Substance: LATANOPROST
     Dosage: 2.5 UNK, UNK(2.5 ML, OPHTHALMIC SOLUTION 0.005)
  2. SYNTHROID [Concomitant]
     Active Substance: LEVOTHYROXINE SODIUM
     Dosage: 75MCG ONE DAY AND 50MCG THE NEXT TWO DAYS, ALTERNATES THE DOSE THIS WAY
     Dates: start: 1980
  3. LATANOPROST. [Suspect]
     Active Substance: LATANOPROST
     Indication: INTRAOCULAR PRESSURE INCREASED
     Dosage: 1 DROP IN EACH EYE AT NIGHT
     Dates: start: 20160325, end: 20160703

REACTIONS (6)
  - Ocular discomfort [Unknown]
  - Vision blurred [Unknown]
  - Drug dose omission [Not Recovered/Not Resolved]
  - Fall [Unknown]
  - Body height decreased [Unknown]
  - Chest pain [Recovered/Resolved]

NARRATIVE: CASE EVENT DATE: 201606
